FAERS Safety Report 9716996 (Version 1)
Quarter: 2013Q4

REPORT INFORMATION
  Report Type: Spontaneous
  Country: US (occurrence: US)
  Receive Date: 20131127
  Receipt Date: 20131127
  Transmission Date: 20140711
  Serious: No
  Sender: FDA-Public Use
  Company Number: US-GILEAD-2009-0020282

PATIENT
  Age: 58 Year
  Sex: Male
  Weight: 172.82 kg

DRUGS (10)
  1. LETAIRIS [Suspect]
     Indication: PULMONARY ARTERIAL HYPERTENSION
     Route: 048
     Dates: start: 20090203
  2. DIOVAN [Concomitant]
  3. VYTORIN [Concomitant]
  4. DILTIAZEM [Concomitant]
  5. LASIX [Concomitant]
  6. DUONEB [Concomitant]
  7. GLUCOPHAGE [Concomitant]
     Indication: DIABETES MELLITUS
  8. LANTUS [Concomitant]
     Indication: DIABETES MELLITUS
  9. OMEPRAZOLE [Concomitant]
  10. CALTRATE [Concomitant]

REACTIONS (2)
  - Respiratory distress [Not Recovered/Not Resolved]
  - Flushing [Not Recovered/Not Resolved]
